FAERS Safety Report 10750205 (Version 2)
Quarter: 2015Q1

REPORT INFORMATION
  Report Type: Spontaneous
  Country: GB (occurrence: GB)
  Receive Date: 20150129
  Receipt Date: 20150308
  Transmission Date: 20150721
  Serious: Yes (Death, Other)
  Sender: FDA-Public Use
  Company Number: PHFR2015GB001047

PATIENT
  Age: 51 Year
  Sex: Male
  Weight: 67.2 kg

DRUGS (9)
  1. BISOPROLOL [Concomitant]
     Active Substance: BISOPROLOL
     Indication: ENURESIS
     Dosage: 10 MG, QD
     Route: 065
  2. ASPIRIN. [Concomitant]
     Active Substance: ASPIRIN
     Indication: CARDIAC DISORDER
     Dosage: 75 MG, QD
     Route: 065
  3. PROBANTHINE [Concomitant]
     Indication: SALIVARY HYPERSECRETION
     Dosage: 2 TABLETS AT NIGHT
     Route: 065
  4. CLOZARIL [Suspect]
     Active Substance: CLOZAPINE
     Indication: SCHIZOPHRENIA
     Dosage: UNK
     Route: 048
     Dates: start: 20051028
  5. SENOKOT                            /00936101/ [Concomitant]
     Indication: CONSTIPATION
     Dosage: 1 TABLET A DAY
     Route: 065
  6. ATORVASTATIN [Concomitant]
     Active Substance: ATORVASTATIN
     Indication: HYPERCHOLESTEROLAEMIA
     Dosage: 80 MG, QD
     Route: 065
  7. RAMIPRIL. [Concomitant]
     Active Substance: RAMIPRIL
     Indication: BLOOD PRESSURE INCREASED
     Dosage: 10 MG, QD
     Route: 065
  8. DESMOPRESIN [Concomitant]
     Active Substance: DESMOPRESSIN
     Indication: GENERAL PHYSICAL CONDITION ABNORMAL
     Dosage: 200 UG, QD
     Route: 065
  9. GLYCERYL TRINITRATE [Concomitant]
     Active Substance: NITROGLYCERIN
     Indication: CARDIAC DISORDER
     Route: 065

REACTIONS (5)
  - Myocardial infarction [Unknown]
  - White blood cell count increased [Unknown]
  - Ventricular fibrillation [Unknown]
  - Neutrophil count increased [Unknown]
  - Death [Fatal]

NARRATIVE: CASE EVENT DATE: 20130627
